FAERS Safety Report 4676654-1 (Version None)
Quarter: 2005Q2

REPORT INFORMATION
  Report Type: 
  Country: None (occurrence: None)
  Receive Date: 20050526
  Receipt Date: 20050513
  Transmission Date: 20051028
  Serious: Yes (Hospitalization, Other)
  Sender: FDA-Public Use
  Company Number: 2005017202

PATIENT
  Age: 79 Year
  Sex: Male
  Weight: 99.7913 kg

DRUGS (3)
  1. BEXTRA [Suspect]
     Indication: ARTHRITIS
     Dosage: 10 MG (10 MG,), ORAL
     Route: 048
     Dates: start: 20041101
  2. LANSOPRAZOLE [Concomitant]
  3. ALPRAZOLAM [Concomitant]

REACTIONS (5)
  - ABDOMINAL PAIN LOWER [None]
  - COMPUTERISED TOMOGRAM ABDOMEN ABNORMAL [None]
  - GASTROINTESTINAL DISORDER [None]
  - ROSACEA [None]
  - URTICARIA [None]
